FAERS Safety Report 5370261-3 (Version None)
Quarter: 2007Q2

REPORT INFORMATION
  Report Type: 
  Country: None (occurrence: None)
  Receive Date: 20070625
  Receipt Date: 20070625
  Transmission Date: 20071010
  Serious: Yes (Other)
  Sender: FDA-Public Use
  Company Number: None

PATIENT
  Sex: Female
  Weight: 57.6068 kg

DRUGS (1)
  1. OPTIRAY 160 [Suspect]
     Dosage: 100 2.0 20G RAC IV
     Route: 042

REACTIONS (4)
  - CONTRAST MEDIA REACTION [None]
  - PRURITUS [None]
  - THROAT IRRITATION [None]
  - URTICARIA [None]
